FAERS Safety Report 5035770-5 (Version None)
Quarter: 2006Q2

REPORT INFORMATION
  Report Type: 
  Country: None (occurrence: None)
  Receive Date: 20060526
  Receipt Date: 20050803
  Transmission Date: 20061013
  Serious: Yes (Other)
  Sender: FDA-Public Use
  Company Number: 05-000588

PATIENT
  Age: 28 Year
  Sex: Female
  Weight: 93.4 kg

DRUGS (2)
  1. OVCON-35 [Suspect]
     Indication: CONTRACEPTION
     Dosage: 35/400 UG, ORAL
     Route: 048
     Dates: start: 20050201
  2. MULTIVITAMIN (THIAMINE HYDROCHLORIDE, ASCORBIC ACID, RIBOFLAVIN, RETIN [Concomitant]

REACTIONS (1)
  - EMBOLISM [None]
